FAERS Safety Report 8492274-5 (Version None)
Quarter: 2012Q3

REPORT INFORMATION
  Report Type: 
  Country: None (occurrence: None)
  Receive Date: 20120706
  Receipt Date: 20120629
  Transmission Date: 20120928
  Serious: Yes (Hospitalization, Other)
  Sender: FDA-Public Use
  Company Number: ID-ROCHE-1079455

PATIENT
  Age: 52 Year
  Sex: Male

DRUGS (1)
  1. BONIVA [Suspect]
     Indication: OSTEOPOROSIS
     Route: 048
     Dates: start: 20120524, end: 20120606

REACTIONS (4)
  - HAEMATURIA [None]
  - HEADACHE [None]
  - MYOCARDIAL INFARCTION [None]
  - DYSPNOEA [None]
